FAERS Safety Report 9388844 (Version 2)
Quarter: 2013Q3

REPORT INFORMATION
  Report Type: Spontaneous
  Country: US (occurrence: US)
  Receive Date: 20130708
  Receipt Date: 20130809
  Transmission Date: 20140515
  Serious: Yes (Other)
  Sender: FDA-Public Use
  Company Number: US-PFIZER INC-2013195939

PATIENT
  Age: 62 Year
  Sex: Female
  Weight: 130.16 kg

DRUGS (1)
  1. LYRICA [Suspect]
     Indication: FIBROMYALGIA
     Dosage: 100 MG, 3X/DAY
     Route: 048
     Dates: start: 2011

REACTIONS (3)
  - Blood thyroid stimulating hormone increased [Unknown]
  - Gait disturbance [Unknown]
  - Nasopharyngitis [Unknown]
